FAERS Safety Report 5654460-9 (Version None)
Quarter: 2008Q1

REPORT INFORMATION
  Report Type: 
  Country: None (occurrence: None)
  Receive Date: 20080305
  Receipt Date: 20080221
  Transmission Date: 20080703
  Serious: Yes (Life-Threatening, Other)
  Sender: FDA-Public Use
  Company Number: 2008VX000122

PATIENT
  Age: 26 Year
  Sex: Female
  Weight: 58.9676 kg

DRUGS (3)
  1. MESTINON [Suspect]
     Indication: MYASTHENIA GRAVIS
     Dosage: 60 MG;TID;PO : 60 MG;PRN;PO
     Route: 048
     Dates: start: 20010101
  2. EXEDRIN [Concomitant]
  3. VITAMIN TAB [Concomitant]

REACTIONS (6)
  - DRUG EXPOSURE DURING PREGNANCY [None]
  - GLAUCOMA [None]
  - OVARIAN DISORDER [None]
  - PREGNANCY [None]
  - PREMATURE BABY [None]
  - TOOTH LOSS [None]
